FAERS Safety Report 6287423-3 (Version None)
Quarter: 2009Q3

REPORT INFORMATION
  Report Type: 
  Country: None (occurrence: None)
  Receive Date: 20090727
  Receipt Date: 20090716
  Transmission Date: 20100115
  Serious: Yes (Other)
  Sender: FDA-Public Use
  Company Number: 2007AL002378

PATIENT
  Age: 63 Year
  Sex: Female

DRUGS (6)
  1. GABAPENTIN [Suspect]
  2. GABAPENTIN [Suspect]
     Indication: DRUG USE FOR UNKNOWN INDICATION
     Dosage: 100 MG; BID;
  3. PREGABALIN [Concomitant]
  4. SIMVASTATIN [Concomitant]
  5. OXYBUTYNIN CHLORIDE [Concomitant]
  6. BACLOFEN [Concomitant]

REACTIONS (2)
  - DRUG INEFFECTIVE [None]
  - JAUNDICE [None]
